FAERS Safety Report 7177453-1 (Version None)
Quarter: 2010Q4

REPORT INFORMATION
  Report Type: 
  Country: None (occurrence: None)
  Receive Date: 20101216
  Receipt Date: 20101216
  Transmission Date: 20110411
  Serious: Yes (Life-Threatening, Hospitalization)
  Sender: FDA-Public Use
  Company Number: None

PATIENT
  Age: 45 Year
  Sex: Male
  Weight: 105 kg

DRUGS (2)
  1. METHADONE HCL [Suspect]
     Indication: DRUG DEPENDENCE
     Dosage: 160 MG ONCE PO
     Route: 048
     Dates: start: 20101014, end: 20101014
  2. CLONAZEPAM [Suspect]
     Dosage: 20 MG ONCE PO
     Route: 048
     Dates: start: 20101014, end: 20101014

REACTIONS (2)
  - RESPIRATORY DEPRESSION [None]
  - SEDATION [None]
